FAERS Safety Report 8856777 (Version 1)
Quarter: 2012Q4

REPORT INFORMATION
  Report Type: Spontaneous
  Country: JP (occurrence: None)
  Receive Date: 20121019
  Receipt Date: 20121019
  Transmission Date: 20130627
  Serious: Yes (Death, Hospitalization, Other)
  Sender: FDA-Public Use
  Company Number: 2012MA012263

PATIENT
  Age: 54 Year
  Sex: Male

DRUGS (2)
  1. VINORELBINE INJECTION USP, 10MG/ML PACKAGED IN 10MG/ML (ATLLC) [Suspect]
     Indication: CHEMOTHERAPY
  2. MUCOSA-PROTECTIVE AGENT [Concomitant]

REACTIONS (4)
  - Gastric ulcer haemorrhage [None]
  - Haemoglobin decreased [None]
  - Gastric perforation [None]
  - Peritonitis [None]
